FAERS Safety Report 15607146 (Version 1)
Quarter: 2018Q4

REPORT INFORMATION
  Report Type: Spontaneous
  Country: FR (occurrence: FR)
  Receive Date: 20181112
  Receipt Date: 20181112
  Transmission Date: 20190205
  Serious: Yes (Life-Threatening, Hospitalization, Other)
  Sender: FDA-Public Use
  Company Number: FR-BRISTOL-MYERS SQUIBB COMPANY-16966301

PATIENT
  Age: 60 Year
  Sex: Male

DRUGS (2)
  1. HEPARINE CHOAY [Suspect]
     Active Substance: HEPARIN SODIUM
     Indication: CARDIAC VALVE PROSTHESIS USER
     Dosage: UNK
     Route: 042
     Dates: end: 20120727
  2. COUMADIN [Suspect]
     Active Substance: WARFARIN SODIUM
     Indication: CARDIAC VALVE PROSTHESIS USER
     Dosage: 1DF: 1.5 UNITS NOS
     Route: 048
     Dates: start: 20120724, end: 20120726

REACTIONS (5)
  - Respiratory distress [Recovered/Resolved]
  - Shock haemorrhagic [Recovered/Resolved]
  - Haemothorax [Recovered/Resolved]
  - Pulmonary haemorrhage [Recovered/Resolved]
  - Post procedural haemorrhage [Recovered/Resolved]

NARRATIVE: CASE EVENT DATE: 20120727
